FAERS Safety Report 10227575 (Version 1)
Quarter: 2014Q2

REPORT INFORMATION
  Report Type: Spontaneous
  Country: US (occurrence: US)
  Receive Date: 20140610
  Receipt Date: 20140610
  Transmission Date: 20141212
  Serious: Yes (Life-Threatening, Hospitalization)
  Sender: FDA-Public Use
  Company Number: US-GLENMARK GENERICS (EUROPE) LTD-2014GMK009709

PATIENT
  Age: 38 Year
  Sex: Male

DRUGS (3)
  1. TOPIRAMATE [Suspect]
     Indication: PRODUCT USED FOR UNKNOWN INDICATION
     Dosage: UNK
  2. CARBAMAZEPINE [Concomitant]
     Indication: PRODUCT USED FOR UNKNOWN INDICATION
     Dosage: UNK
  3. RISPERIDONE [Concomitant]
     Indication: PRODUCT USED FOR UNKNOWN INDICATION
     Dosage: UNK

REACTIONS (11)
  - Heat stroke [Unknown]
  - Disseminated intravascular coagulation [Unknown]
  - Multi-organ failure [Unknown]
  - Renal failure acute [Unknown]
  - Liver injury [Unknown]
  - Ischaemic gastritis [Unknown]
  - Gastric perforation [Unknown]
  - Upper gastrointestinal haemorrhage [Unknown]
  - Unresponsive to stimuli [Unknown]
  - Hyperthermia [Unknown]
  - Hypotension [Unknown]
